FAERS Safety Report 5091659-7 (Version None)
Quarter: 2006Q3

REPORT INFORMATION
  Report Type: 
  Country: None (occurrence: None)
  Receive Date: 20060829
  Receipt Date: 20060724
  Transmission Date: 20061208
  Serious: Yes (Death, Hospitalization, Other)
  Sender: FDA-Public Use
  Company Number: PHEH2006US09697

PATIENT
  Age: 75 Year
  Sex: Male
  Weight: 77.097 kg

DRUGS (16)
  1. EXJADE [Suspect]
     Indication: HAEMOSIDEROSIS
     Dosage: 1500 MG, QD
     Route: 048
     Dates: start: 20060308, end: 20060515
  2. VIDAZA [Concomitant]
     Dosage: 100 MG, QD
  3. ANZEMET [Concomitant]
  4. NEUPOGEN [Concomitant]
  5. ANTIBIOTICS [Concomitant]
  6. REMERON [Concomitant]
     Dosage: 15 MG, QHS
     Route: 048
  7. PERCOCET [Concomitant]
     Dosage: 5/325 ONE TO TWO
     Route: 048
  8. MAXZIDE [Concomitant]
     Dosage: 37.5/25 MG, QD
  9. FLOMAX [Concomitant]
     Dosage: 0.4 MG, QD
     Route: 048
  10. LOTREL [Concomitant]
     Dosage: 5/20MG
  11. COMPAZINE [Concomitant]
  12. PROTONIX [Concomitant]
     Dosage: 40 MG, UNK
  13. MULTIVITAMIN [Concomitant]
  14. TYLENOL [Concomitant]
  15. TRILISATE [Concomitant]
     Dosage: 500 MG, QD
  16. KLOR-CON [Concomitant]
     Dosage: 8 MEQ, QD

REACTIONS (31)
  - ACUTE PRERENAL FAILURE [None]
  - ACUTE RESPIRATORY FAILURE [None]
  - ANOREXIA [None]
  - ASCITES [None]
  - ASTHENIA [None]
  - BLOOD PRESSURE SYSTOLIC DECREASED [None]
  - BODY TEMPERATURE INCREASED [None]
  - CARDIAC FAILURE CONGESTIVE [None]
  - COLITIS [None]
  - CONSTIPATION [None]
  - DEHYDRATION [None]
  - DEPRESSED LEVEL OF CONSCIOUSNESS [None]
  - DIARRHOEA [None]
  - DIZZINESS [None]
  - FLANK PAIN [None]
  - HAEMOGLOBIN DECREASED [None]
  - HEART RATE INCREASED [None]
  - HYPOTENSION [None]
  - INTESTINAL INFARCTION [None]
  - LOCALISED OEDEMA [None]
  - LYMPHADENOPATHY [None]
  - NAUSEA [None]
  - NEUTROPENIA [None]
  - PANCYTOPENIA [None]
  - PLEURAL EFFUSION [None]
  - RESPIRATORY RATE INCREASED [None]
  - SEPTIC SHOCK [None]
  - SPLENOMEGALY [None]
  - SYSTEMIC INFLAMMATORY RESPONSE SYNDROME [None]
  - THROMBOCYTOPENIA [None]
  - WHITE BLOOD CELL COUNT INCREASED [None]
